FAERS Safety Report 7904750-1 (Version None)
Quarter: 2011Q4

REPORT INFORMATION
  Report Type: 
  Country: None (occurrence: None)
  Receive Date: 20111109
  Receipt Date: 20111031
  Transmission Date: 20120403
  Serious: Yes (Hospitalization)
  Sender: FDA-Public Use
  Company Number: US-BAYER-2011-048376

PATIENT
  Age: 50 Year
  Sex: Female
  Weight: 113.38 kg

DRUGS (7)
  1. YAZ [Suspect]
  2. DILTIAZEM HCL [Concomitant]
     Indication: HYPERTENSION
     Dosage: UNK
     Dates: start: 20060101
  3. YAZ [Suspect]
     Indication: DYSMENORRHOEA
     Dosage: UNK
     Dates: start: 20100101
  4. DIOVAN HCT [Concomitant]
     Indication: HYPERTENSION
     Dosage: UNK
     Dates: start: 20060101
  5. PROZAC [Concomitant]
  6. BYSTOLIC [Concomitant]
     Dosage: UNK
     Dates: start: 20060101
  7. ACETAMINOPHEN [Concomitant]

REACTIONS (4)
  - INJURY [None]
  - PAIN [None]
  - PULMONARY THROMBOSIS [None]
  - MENTAL DISORDER [None]
